FAERS Safety Report 15168699 (Version 2)
Quarter: 2018Q4

REPORT INFORMATION
  Report Type: Report from Study
  Country: US (occurrence: US)
  Receive Date: 20180720
  Receipt Date: 20181102
  Transmission Date: 20190204
  Serious: Yes (Other)
  Sender: FDA-Public Use
  Company Number: US-AMGEN-USASL2018097576

PATIENT
  Age: 56 Year
  Sex: Male

DRUGS (1)
  1. ENBREL [Suspect]
     Active Substance: ETANERCEPT
     Indication: PSORIATIC ARTHROPATHY
     Dosage: 50 MG, QWK
     Route: 065
     Dates: end: 2018

REACTIONS (4)
  - Psoriatic arthropathy [Not Recovered/Not Resolved]
  - Wrong technique in product usage process [Unknown]
  - Product storage error [Unknown]
  - Therapy non-responder [Unknown]
